FAERS Safety Report 12178868 (Version 1)
Quarter: 2016Q1

REPORT INFORMATION
  Report Type: Spontaneous
  Country: US (occurrence: US)
  Receive Date: 20160314
  Receipt Date: 20160314
  Transmission Date: 20160526
  Serious: No
  Sender: FDA-Public Use
  Company Number: US-SA-2016SA012156

PATIENT
  Age: 19 Year
  Sex: Female

DRUGS (10)
  1. TOUJEO [Suspect]
     Active Substance: INSULIN GLARGINE
     Indication: TYPE 1 DIABETES MELLITUS
     Dosage: DOSE:72 UNIT(S)
     Route: 065
  2. SOLOSTAR [Concomitant]
     Active Substance: DEVICE
     Dates: start: 20160115
  3. LEVEMIR [Concomitant]
     Active Substance: INSULIN DETEMIR
  4. HUMALOG [Concomitant]
     Active Substance: INSULIN LISPRO
  5. TOUJEO [Suspect]
     Active Substance: INSULIN GLARGINE
     Indication: TYPE 1 DIABETES MELLITUS
     Dosage: DOSE:62 UNITS IN MORNING AND 5 U AT NIGHT
     Route: 065
     Dates: start: 20160115
  6. TOUJEO [Suspect]
     Active Substance: INSULIN GLARGINE
     Indication: TYPE 1 DIABETES MELLITUS
     Dosage: DOSE:62 UNITS IN MORNING AND 5 U AT NIGHT
     Route: 065
     Dates: start: 20160114
  7. TOUJEO [Suspect]
     Active Substance: INSULIN GLARGINE
     Indication: TYPE 1 DIABETES MELLITUS
     Dosage: DOSE:62 UNITS IN MORNING AND 5 U AT NIGHT DOSE:50 UNIT(S)
     Route: 065
     Dates: start: 20160116
  8. SOLOSTAR [Concomitant]
     Active Substance: DEVICE
  9. SOLOSTAR [Concomitant]
     Active Substance: DEVICE
     Dates: start: 20160116
  10. SOLOSTAR [Concomitant]
     Active Substance: DEVICE
     Dates: start: 20160114

REACTIONS (4)
  - Drug administration error [Unknown]
  - Wrong technique in product usage process [Unknown]
  - Blood glucose decreased [Not Recovered/Not Resolved]
  - Blood glucose increased [Not Recovered/Not Resolved]

NARRATIVE: CASE EVENT DATE: 201601
